FAERS Safety Report 16853351 (Version 1)
Quarter: 2019Q3

REPORT INFORMATION
  Report Type: Other
  Country: IT (occurrence: IT)
  Receive Date: 20190925
  Receipt Date: 20190925
  Transmission Date: 20191005
  Serious: Yes (Hospitalization)
  Sender: FDA-Public Use
  Company Number: IT-CELLTRION INC.-2019IT025051

PATIENT

DRUGS (7)
  1. PARACETAMOL [Concomitant]
     Active Substance: ACETAMINOPHEN
     Indication: PYREXIA
     Dosage: 1 G, 1 CYCLE
     Route: 041
     Dates: start: 20190510, end: 20190510
  2. BENDAMUSTINA ACCORD 2,5 MG/ML POLVO PARA CONCENTRADO PARA SOLUCION PAR [Suspect]
     Active Substance: BENDAMUSTINE
     Indication: B-CELL LYMPHOMA
     Dosage: 100 MG, 1 CYCLE
     Route: 041
     Dates: start: 20190510, end: 20190510
  3. TRUXIMA [Suspect]
     Active Substance: RITUXIMAB-ABBS
     Indication: B-CELL LYMPHOMA
     Dosage: 641 MG, CYCLIC
     Route: 041
     Dates: start: 20190510, end: 20190510
  4. LANSOPRAZOLE. [Concomitant]
     Active Substance: LANSOPRAZOLE
     Dosage: 15 MG, QD
     Route: 048
  5. MYCOSTATIN [Concomitant]
     Active Substance: NYSTATIN
     Dosage: 15 ML, 1 DAY
     Route: 048
  6. TRIMETON [SULFAMETHOXAZOLE;TRIMETHOPRIM] [Concomitant]
     Dosage: 10 MG, 1 CYCLE
     Route: 042
  7. SOLU-MEDROL [Concomitant]
     Active Substance: METHYLPREDNISOLONE SODIUM SUCCINATE
     Dosage: 20 MG, 1 CYCLE
     Dates: start: 20190510, end: 20190510

REACTIONS (4)
  - Dysphagia [Recovered/Resolved]
  - Urticaria [Recovered/Resolved]
  - Arthralgia [Recovered/Resolved]
  - Pyrexia [Recovered/Resolved]

NARRATIVE: CASE EVENT DATE: 20190523
